FAERS Safety Report 8552306-2 (Version None)
Quarter: 2012Q3

REPORT INFORMATION
  Report Type: 
  Country: None (occurrence: None)
  Receive Date: 20120723
  Receipt Date: 20120723
  Transmission Date: 20120928
  Serious: Yes (Hospitalization)
  Sender: FDA-Public Use
  Company Number: None

PATIENT
  Age: 68 Year
  Sex: Male
  Weight: 60 kg

DRUGS (1)
  1. PENTAMIDINE ISETHIONATE [Suspect]
     Dosage: 300 MG UD IV
     Route: 042
     Dates: start: 20120508, end: 20120508

REACTIONS (1)
  - BRONCHOSPASM [None]
